FAERS Safety Report 14132961 (Version 2)
Quarter: 2018Q3

REPORT INFORMATION
  Report Type: Spontaneous
  Country: JP (occurrence: JP)
  Receive Date: 20171027
  Receipt Date: 20180727
  Transmission Date: 20181010
  Serious: Yes (Death, Other)
  Sender: FDA-Public Use
  Company Number: JP-CLINIGEN GROUP PLC/ CLINIGEN HEALTHCARE LTD-JP-CLGN-17-00364

PATIENT

DRUGS (6)
  1. FOSCAVIR [Suspect]
     Active Substance: FOSCARNET SODIUM
     Indication: CONGENITAL CYTOMEGALOVIRUS INFECTION
     Route: 041
  2. CMV?HYPERIMMUNE GLOBULIN [Concomitant]
     Indication: CONGENITAL CYTOMEGALOVIRUS INFECTION
  3. FOSCAVIR [Suspect]
     Active Substance: FOSCARNET SODIUM
     Route: 041
  4. GANCICLOVIR. [Concomitant]
     Active Substance: GANCICLOVIR
     Indication: CONGENITAL CYTOMEGALOVIRUS INFECTION
  5. FOSCAVIR [Suspect]
     Active Substance: FOSCARNET SODIUM
     Route: 041
  6. RED BLOOD CELLS [Concomitant]
     Active Substance: HUMAN RED BLOOD CELL
     Indication: PRODUCT USED FOR UNKNOWN INDICATION

REACTIONS (4)
  - Chromaturia [Unknown]
  - Cardiac arrest [Fatal]
  - Blood creatinine increased [Unknown]
  - Off label use [Unknown]
